FAERS Safety Report 21381046 (Version 1)
Quarter: 2022Q3

REPORT INFORMATION
  Report Type: Spontaneous
  Country: US (occurrence: US)
  Receive Date: 20220927
  Receipt Date: 20220927
  Transmission Date: 20221027
  Serious: No
  Sender: FDA-Public Use
  Company Number: US-TEVA-2022-US-2073107

PATIENT
  Sex: Female

DRUGS (1)
  1. EPINEPHRINE [Suspect]
     Active Substance: EPINEPHRINE
     Indication: Product used for unknown indication
     Dosage: 0.3 MG / 0.3 ML/PATIENT INJECTION ON 03-SEP-2022
     Route: 065

REACTIONS (4)
  - Hypersensitivity [Unknown]
  - Needle issue [Unknown]
  - Accidental exposure to product [Unknown]
  - Injection related reaction [Unknown]

NARRATIVE: CASE EVENT DATE: 20220903
